FAERS Safety Report 15942996 (Version 2)
Quarter: 2019Q1

REPORT INFORMATION
  Report Type: Spontaneous
  Country: IT (occurrence: IT)
  Receive Date: 20190210
  Receipt Date: 20190308
  Transmission Date: 20190417
  Serious: Yes (Death)
  Sender: FDA-Public Use
  Company Number: GXKR2004IT04609

PATIENT
  Age: 45 Year
  Sex: Female

DRUGS (24)
  1. FUROSEMIDE. [Suspect]
     Active Substance: FUROSEMIDE
     Indication: OLIGURIA
     Dosage: UNK
     Route: 042
     Dates: start: 20021027
  2. ITRACONAZOLE. [Suspect]
     Active Substance: ITRACONAZOLE
     Indication: PRODUCT USED FOR UNKNOWN INDICATION
     Dosage: UNK
     Route: 065
     Dates: start: 20021009
  3. HALOPERIDOL. [Suspect]
     Active Substance: HALOPERIDOL
     Indication: HALLUCINATION
     Dosage: UNK
     Route: 065
     Dates: start: 20021009
  4. PANTOPRAZOLE [Suspect]
     Active Substance: PANTOPRAZOLE
     Indication: PRODUCT USED FOR UNKNOWN INDICATION
     Dosage: UNK
     Route: 065
     Dates: start: 20021009
  5. CALCIUM CARBONATE. [Suspect]
     Active Substance: CALCIUM CARBONATE
     Indication: PRODUCT USED FOR UNKNOWN INDICATION
     Dosage: 1 G, UNK
     Route: 065
  6. RABEPRAZOLE [Suspect]
     Active Substance: RABEPRAZOLE
     Indication: PRODUCT USED FOR UNKNOWN INDICATION
     Dosage: UNK
     Route: 065
  7. METOCLOPRAMIDE. [Suspect]
     Active Substance: METOCLOPRAMIDE
     Indication: PRODUCT USED FOR UNKNOWN INDICATION
     Dosage: UNK
     Route: 065
     Dates: end: 20020927
  8. NYSTATIN. [Suspect]
     Active Substance: NYSTATIN
     Indication: ORAL CANDIDIASIS
     Dosage: UNK
     Route: 065
     Dates: start: 20020927, end: 20020927
  9. CEFACLOR. [Suspect]
     Active Substance: CEFACLOR
     Indication: ORAL CANDIDIASIS
  10. LEVOFLOXACIN. [Suspect]
     Active Substance: LEVOFLOXACIN
     Indication: PNEUMONIA
     Dosage: 500 MG, UNK
     Route: 048
     Dates: start: 20021004
  11. DIAZEPAM. [Suspect]
     Active Substance: DIAZEPAM
     Indication: AGITATION
     Dosage: UNK
     Route: 065
     Dates: start: 20021009
  12. DIAZEPAM. [Suspect]
     Active Substance: DIAZEPAM
     Indication: HALLUCINATION
  13. FLUDROCORTISONE [Suspect]
     Active Substance: FLUDROCORTISONE
     Indication: PRODUCT USED FOR UNKNOWN INDICATION
     Dosage: UNK
     Route: 065
     Dates: start: 20020927
  14. BETAMETHASONE. [Suspect]
     Active Substance: BETAMETHASONE
     Indication: PRODUCT USED FOR UNKNOWN INDICATION
     Dosage: UNK
     Route: 065
     Dates: end: 20020927
  15. CALCITRIOL. [Suspect]
     Active Substance: CALCITRIOL
     Indication: PRODUCT USED FOR UNKNOWN INDICATION
     Dosage: 0.5 UG, UNK
     Route: 065
     Dates: start: 20020927
  16. NYSTATIN. [Suspect]
     Active Substance: NYSTATIN
     Indication: CYSTITIS
  17. CEFACLOR. [Suspect]
     Active Substance: CEFACLOR
     Indication: CYSTITIS
  18. CEFACLOR. [Suspect]
     Active Substance: CEFACLOR
     Indication: CYSTITIS
     Dosage: UNK
     Route: 065
     Dates: end: 20020927
  19. CORTISONE ACETATE. [Suspect]
     Active Substance: CORTISONE ACETATE
     Indication: PRODUCT USED FOR UNKNOWN INDICATION
     Dosage: 50 MG, UNK
     Route: 065
     Dates: start: 20020927
  20. AMOXICILLIN + CLAVULANATE POTASSIUM [Suspect]
     Active Substance: AMOXICILLIN\CLAVULANATE POTASSIUM
     Indication: PNEUMONIA
     Dosage: 3600 MG, QD
     Route: 042
     Dates: start: 20021004
  21. CALCIUM GLUCONATE. [Suspect]
     Active Substance: CALCIUM GLUCONATE
     Indication: PRODUCT USED FOR UNKNOWN INDICATION
     Dosage: UNK
     Route: 065
     Dates: start: 20021009
  22. CANRENOATE DE POTASSIUM [Suspect]
     Active Substance: CANRENOATE POTASSIUM
     Indication: AGITATION
     Dosage: UNK
     Route: 048
     Dates: start: 20021004
  23. OMEPRAZOLE. [Suspect]
     Active Substance: OMEPRAZOLE
     Indication: PRODUCT USED FOR UNKNOWN INDICATION
     Dosage: UNK
     Route: 065
     Dates: start: 20020927
  24. FUROSEMIDE. [Suspect]
     Active Substance: FUROSEMIDE
     Dosage: UNK
     Route: 048
     Dates: start: 20021004

REACTIONS (2)
  - Toxic epidermal necrolysis [Fatal]
  - Septic shock [Fatal]

NARRATIVE: CASE EVENT DATE: 200210
